FAERS Safety Report 9399042 (Version 1)
Quarter: 2013Q3

REPORT INFORMATION
  Report Type: Spontaneous
  Country: US (occurrence: US)
  Receive Date: 20130715
  Receipt Date: 20130715
  Transmission Date: 20140515
  Serious: Yes (Other)
  Sender: FDA-Public Use
  Company Number: US-AMGEN-USASP2013048416

PATIENT
  Age: 12 Year
  Sex: Male

DRUGS (5)
  1. EPOGEN [Suspect]
     Indication: RENAL FAILURE CHRONIC
     Dosage: 3000 UNIT, Q2WK
     Route: 065
     Dates: end: 201303
  2. PROGRAF [Concomitant]
     Dosage: UNK
  3. MYFORTIC [Concomitant]
     Dosage: UNK
  4. FERREX [Concomitant]
     Dosage: UNK
  5. VITAMIN D                          /00107901/ [Concomitant]
     Dosage: UNK

REACTIONS (1)
  - Non-Hodgkin^s lymphoma [Unknown]
